FAERS Safety Report 24966782 (Version 1)
Quarter: 2025Q1

REPORT INFORMATION
  Report Type: Spontaneous
  Country: FR (occurrence: FR)
  Receive Date: 20250213
  Receipt Date: 20250213
  Transmission Date: 20250409
  Serious: Yes (Other)
  Sender: MYLAN
  Company Number: None

PATIENT
  Age: 76 Year
  Sex: Female
  Weight: 81 kg

DRUGS (8)
  1. METFORMIN [Suspect]
     Active Substance: METFORMIN HYDROCHLORIDE
     Indication: Type 2 diabetes mellitus
     Dosage: 1000 MILLIGRAM, QD (0-1-0)
     Route: 048
     Dates: start: 20230101, end: 20230113
  2. JANUMET [Suspect]
     Active Substance: METFORMIN HYDROCHLORIDE\SITAGLIPTIN PHOSPHATE
     Indication: Type 2 diabetes mellitus
     Dosage: 1 DOSAGE FORM, BID (1-0-1)
     Route: 048
     Dates: start: 20230101, end: 20230113
  3. CANDESARTAN CILEXETIL\HYDROCHLOROTHIAZIDE [Concomitant]
     Active Substance: CANDESARTAN CILEXETIL\HYDROCHLOROTHIAZIDE
     Indication: Essential hypertension
     Dosage: 1 DOSAGE FORM, QD (1-0-0)
     Route: 048
     Dates: start: 2023, end: 20230113
  4. FUROSEMIDE [Concomitant]
     Active Substance: FUROSEMIDE
     Indication: Essential hypertension
     Dosage: 20 MILLIGRAM, BID (1-1-0)
     Route: 048
     Dates: start: 2023, end: 20230113
  5. NEBIVOLOL [Concomitant]
     Active Substance: NEBIVOLOL
     Indication: Essential hypertension
     Dosage: 5 MILLIGRAM, QD (1-0-0)
     Route: 048
     Dates: start: 2023, end: 20230113
  6. LERCANIDIPINE HYDROCHLORIDE [Concomitant]
     Active Substance: LERCANIDIPINE HYDROCHLORIDE
     Indication: Essential hypertension
     Dosage: 10 MILLIGRAM, QD (1-0-0)
     Route: 048
     Dates: start: 2023, end: 20230113
  7. ESCITALOPRAM [Concomitant]
     Active Substance: ESCITALOPRAM OXALATE
     Indication: Product used for unknown indication
     Dosage: 10 MILLIGRAM, QD (1-0-0)
     Route: 048
     Dates: start: 2023, end: 20230113
  8. ROSUVASTATIN [Concomitant]
     Active Substance: ROSUVASTATIN
     Indication: Product used for unknown indication
     Dosage: 10 MILLIGRAM, QD (0-0-1)
     Route: 048
     Dates: start: 2023, end: 20230113

REACTIONS (2)
  - Lactic acidosis [Recovered/Resolved]
  - Drug level above therapeutic [Recovered/Resolved]

NARRATIVE: CASE EVENT DATE: 20230113
